FAERS Safety Report 15517221 (Version 2)
Quarter: 2018Q4

REPORT INFORMATION
  Report Type: Spontaneous
  Country: NL (occurrence: NL)
  Receive Date: 20181017
  Receipt Date: 20181130
  Transmission Date: 20190205
  Serious: Yes (Other)
  Sender: FDA-Public Use
  Company Number: NL-009507513-1810NLD007126

PATIENT
  Sex: Male

DRUGS (3)
  1. CARBIDOPA (+) LEVODOPA [Suspect]
     Active Substance: CARBIDOPA\LEVODOPA
     Dosage: UNK (STRENGTH: 125 (UNITS NOT SPECIFIED))
     Route: 048
  2. CARBIDOPA (+) LEVODOPA [Suspect]
     Active Substance: CARBIDOPA\LEVODOPA
     Dosage: UNK
     Route: 048
  3. SINEMET [Suspect]
     Active Substance: CARBIDOPA\LEVODOPA
     Dosage: UNK (STRENGTH: 12.5/50 (UNITS NOT SPECIFIED))
     Route: 048

REACTIONS (7)
  - Narcolepsy [Unknown]
  - Dysstasia [Unknown]
  - Dyskinesia [Unknown]
  - Distractibility [Unknown]
  - Eye disorder [Unknown]
  - Mental impairment [Unknown]
  - Abnormal behaviour [Unknown]
